FAERS Safety Report 4509001-6 (Version None)
Quarter: 2004Q4

REPORT INFORMATION
  Report Type: 
  Country: None (occurrence: None)
  Receive Date: 20041122
  Receipt Date: 20041122
  Transmission Date: 20050328
  Serious: No
  Sender: FDA-Public Use
  Company Number: None

PATIENT
  Sex: Female
  Weight: 47.6 kg

DRUGS (2)
  1. PRIMAXIN [Suspect]
     Indication: CYSTIC FIBROSIS
     Dosage: 750MG 8 HOURS  INTRAVENOUS
     Route: 042
     Dates: start: 20041116, end: 20041116
  2. FORTAZ [Concomitant]

REACTIONS (4)
  - CHILLS [None]
  - DIARRHOEA [None]
  - DYSPNOEA [None]
  - PYREXIA [None]
